FAERS Safety Report 4971227-5 (Version None)
Quarter: 2006Q2

REPORT INFORMATION
  Report Type: 
  Country: None (occurrence: None)
  Receive Date: 20060413
  Receipt Date: 20051123
  Transmission Date: 20061013
  Serious: Yes (Hospitalization, Other)
  Sender: FDA-Public Use
  Company Number: US-MERCK-0511USA04015

PATIENT
  Age: 43 Year
  Sex: Male
  Weight: 132 kg

DRUGS (41)
  1. VIOXX [Suspect]
     Indication: ARTHRITIS
     Route: 048
     Dates: start: 19990913, end: 20041001
  2. VIOXX [Suspect]
     Route: 048
     Dates: start: 19990913, end: 20041001
  3. VIOXX [Suspect]
     Route: 048
     Dates: start: 19990913, end: 20041001
  4. VIOXX [Suspect]
     Route: 048
     Dates: start: 19990913, end: 20041001
  5. ALPRAZOLAM [Concomitant]
     Indication: ANXIETY
     Route: 065
  6. ALPRAZOLAM [Concomitant]
     Indication: DEPRESSION
     Route: 065
  7. AMBIEN [Concomitant]
     Indication: INSOMNIA
     Route: 065
  8. ASPIRIN [Concomitant]
     Indication: CEREBROVASCULAR ACCIDENT PROPHYLAXIS
     Route: 065
  9. ASPIRIN [Concomitant]
     Indication: ISCHAEMIC HEART DISEASE PROPHYLAXIS
     Route: 065
  10. ASTELIN [Concomitant]
     Indication: NASAL CONGESTION
     Route: 065
  11. AVINZA [Concomitant]
     Indication: PAIN
     Route: 065
  12. BIAXIN [Concomitant]
     Indication: INFECTION
     Route: 065
  13. ATENOLOL [Concomitant]
     Indication: HYPERTENSION
     Route: 065
  14. CLARITIN [Concomitant]
     Route: 065
  15. CLIDINIUM BROMIDE [Concomitant]
     Indication: IRRITABLE BOWEL SYNDROME
     Route: 065
  16. CLINDAMYCIN [Concomitant]
     Indication: INFECTION
     Route: 065
  17. CYCLOBENZAPRINE HYDROCHLORIDE [Concomitant]
     Indication: HYPOTONIA
     Route: 065
  18. FUROSEMIDE [Concomitant]
     Indication: HYPERTENSION
     Route: 065
  19. FUROSEMIDE [Concomitant]
     Indication: OEDEMA
     Route: 065
  20. GLYCOLAX [Concomitant]
     Indication: CONSTIPATION
     Route: 065
  21. HYDROCHLOROTHIAZIDE [Concomitant]
     Indication: HYPERTENSION
     Route: 065
  22. ACETAMINOPHEN AND HYDROCODONE BITARTRATE [Concomitant]
     Indication: PAIN
     Route: 065
  23. LEVAQUIN [Concomitant]
     Indication: INFECTION
     Route: 065
  24. LISINOPRIL [Concomitant]
     Route: 065
  25. MAXAIR [Concomitant]
     Indication: ASTHMA
     Route: 065
  26. MEPERIDINE HYDROCHLORIDE [Concomitant]
     Indication: PAIN
     Route: 065
  27. METHYLPREDNISOLONE [Concomitant]
     Route: 065
  28. METRONIDAZOLE [Concomitant]
     Indication: INFECTION
     Route: 065
  29. MIRALAX [Concomitant]
     Indication: CONSTIPATION
     Route: 065
  30. NORVASC [Concomitant]
     Route: 065
  31. ACETAMINOPHEN AND OXYCODONE HYDROCHLORIDE [Concomitant]
     Indication: PAIN
     Route: 065
  32. PREDNISONE [Concomitant]
     Route: 065
  33. PREVACID [Concomitant]
     Indication: GASTROOESOPHAGEAL REFLUX DISEASE
     Route: 065
  34. PRILOSEC [Concomitant]
     Indication: GASTROOESOPHAGEAL REFLUX DISEASE
     Route: 065
  35. ACETAMINOPHEN AND PROPOXYPHENE NAPSYLATE [Concomitant]
     Indication: PAIN
     Route: 065
  36. QUININE SULFATE [Concomitant]
     Route: 065
  37. SULFASALAZINE [Concomitant]
     Indication: RHEUMATOID ARTHRITIS
     Route: 065
  38. TEVETEN [Concomitant]
     Indication: HYPERTENSION
     Route: 065
  39. TRAMADOL HYDROCHLORIDE [Concomitant]
     Indication: PAIN
     Route: 065
  40. TUSSIONEX [Concomitant]
     Indication: ANTITUSSIVE THERAPY
     Route: 065
  41. ZITHROMAX [Concomitant]
     Indication: INFECTION
     Route: 065

REACTIONS (6)
  - DEEP VEIN THROMBOSIS [None]
  - FOOT FRACTURE [None]
  - GASTROOESOPHAGEAL REFLUX DISEASE [None]
  - HAEMATOCHEZIA [None]
  - PRESCRIBED OVERDOSE [None]
  - PULMONARY EMBOLISM [None]
